FAERS Safety Report 8448771-1 (Version None)
Quarter: 2012Q2

REPORT INFORMATION
  Report Type: 
  Country: None (occurrence: None)
  Receive Date: 20120619
  Receipt Date: 20120611
  Transmission Date: 20120825
  Serious: Yes (Death)
  Sender: FDA-Public Use
  Company Number: PT-BAXTER-2012BAX007952

PATIENT
  Sex: Male

DRUGS (18)
  1. CLONIDINE [Concomitant]
     Route: 048
     Dates: end: 20120608
  2. LERCANIDIPINE [Concomitant]
     Dosage: 1 TABLET
     Route: 048
     Dates: end: 20120608
  3. NEBIVOLOL [Concomitant]
     Dosage: 1/2 TABLET
     Route: 048
     Dates: end: 20120608
  4. PERINDOPRIL ERBUMINE [Concomitant]
     Dosage: 2 TABLETS
     Route: 048
     Dates: end: 20120608
  5. INSULIN [Concomitant]
     Dates: end: 20120608
  6. PHYSIONEAL 40 GLUCOSE 1,36% P/V / 13,6 MG/ML [Suspect]
     Route: 033
     Dates: end: 20120608
  7. VITAMIN D [Concomitant]
     Route: 048
     Dates: end: 20120608
  8. FUROSEMIDE [Concomitant]
     Route: 048
  9. IRON [Concomitant]
     Route: 048
     Dates: end: 20120608
  10. EXTRANEAL [Suspect]
     Route: 033
     Dates: end: 20120608
  11. ALFACALCIDOL [Concomitant]
     Route: 048
     Dates: end: 20120608
  12. FOLIC ACID [Concomitant]
     Route: 048
     Dates: end: 20120608
  13. ACETYLSALICYLIC ACID SRT [Concomitant]
     Dosage: 1 TABLET
     Route: 048
     Dates: end: 20120608
  14. EPOETIN [Concomitant]
     Route: 058
     Dates: end: 20120608
  15. CLOPIDOGREL [Concomitant]
     Dosage: 1 TABLET
     Route: 048
     Dates: end: 20120608
  16. B COMPLEX                          /00212701/ [Concomitant]
     Route: 048
     Dates: end: 20120608
  17. ISOSORBIDE MONONITRATE [Concomitant]
     Dosage: 1 TABLET
     Route: 048
     Dates: end: 20120608
  18. PANTOPRAZOLE [Concomitant]
     Dosage: 1 TABLET
     Route: 048

REACTIONS (1)
  - DEATH [None]
